FAERS Safety Report 15779297 (Version 8)
Quarter: 2019Q2

REPORT INFORMATION
  Report Type: Spontaneous
  Country: US (occurrence: US)
  Receive Date: 20190101
  Receipt Date: 20190521
  Transmission Date: 20190711
  Serious: No
  Sender: FDA-Public Use
  Company Number: US-PFIZER INC-2018531865

PATIENT
  Age: 72 Year
  Sex: Female
  Weight: 68 kg

DRUGS (4)
  1. PRISTIQ EXTENDED-RELEASE [Suspect]
     Active Substance: DESVENLAFAXINE SUCCINATE
     Indication: DEPRESSION
     Dosage: 75 MG, 1X/DAY, (1.5 TABLET ORALLY ONCE DAILY)
     Route: 048
     Dates: start: 20160726
  2. PRISTIQ EXTENDED-RELEASE [Suspect]
     Active Substance: DESVENLAFAXINE SUCCINATE
     Indication: STRESS
     Dosage: UNK UNK, 1X/DAY (1 1/2 ONCE A DAY)
  3. PRISTIQ EXTENDED-RELEASE [Suspect]
     Active Substance: DESVENLAFAXINE SUCCINATE
     Indication: ANXIETY
     Dosage: 25 MG, 1X/DAY (0.5 EXTENDED RELEASE TABLET ONCE A DAY FOR 90 DAYS)
     Route: 048
  4. PRISTIQ EXTENDED-RELEASE [Suspect]
     Active Substance: DESVENLAFAXINE SUCCINATE
     Indication: OBSESSIVE-COMPULSIVE DISORDER

REACTIONS (5)
  - Nausea [Unknown]
  - Rash [Unknown]
  - Pain [Not Recovered/Not Resolved]
  - Headache [Not Recovered/Not Resolved]
  - Wrong technique in product usage process [Unknown]
